FAERS Safety Report 4626251-9 (Version None)
Quarter: 2005Q2

REPORT INFORMATION
  Report Type: 
  Country: None (occurrence: None)
  Receive Date: 20050331
  Receipt Date: 20040706
  Transmission Date: 20051028
  Serious: Yes (Other)
  Sender: FDA-Public Use
  Company Number: 200413346BCC

PATIENT
  Age: 21 Year
  Sex: Female
  Weight: 54.4316 kg

DRUGS (2)
  1. ALEVE [Suspect]
     Indication: INTENTIONAL SELF-INJURY
     Dosage: 3300 MG, ONCE, ORAL
     Route: 048
     Dates: start: 20040706
  2. NOT SURE OF THE NAMES OF THE MEDICATIONS (NOS) [Concomitant]

REACTIONS (3)
  - ABDOMINAL DISTENSION [None]
  - ABDOMINAL PAIN UPPER [None]
  - HAEMATEMESIS [None]
